FAERS Safety Report 8837776 (Version 3)
Quarter: 2013Q1

REPORT INFORMATION
  Report Type: Spontaneous
  Country: IE (occurrence: IE)
  Receive Date: 20121012
  Receipt Date: 20130211
  Transmission Date: 20140127
  Serious: Yes (Life-Threatening, Hospitalization, Other)
  Sender: FDA-Public Use
  Company Number: IE-JNJFOC-20121006832

PATIENT
  Sex: Female
  Weight: 80 kg

DRUGS (5)
  1. PALEXIA SR [Suspect]
     Indication: PAIN
     Dosage: DRUG WAS DISCONTINUED AFTER 4WEEKS,
     Route: 048
     Dates: start: 20120716, end: 20120910
  2. ALL OTHER THERAPEUTIC PRODUCTS [Concomitant]
     Route: 065
  3. BACLOFEN [Concomitant]
     Indication: MUSCLE SPASTICITY
     Route: 048
  4. FLUPIRTINE [Concomitant]
     Indication: MUSCLE SPASTICITY
     Route: 048
  5. DIAZEPAM [Concomitant]
     Indication: MUSCLE SPASTICITY
     Route: 048

REACTIONS (5)
  - Neurological symptom [Recovered/Resolved]
  - Neuroleptic malignant syndrome [Recovered/Resolved]
  - Altered state of consciousness [Recovered/Resolved]
  - Mental status changes [Recovered/Resolved]
  - Confusional state [Recovered/Resolved]
